FAERS Safety Report 7423214-5 (Version None)
Quarter: 2011Q2

REPORT INFORMATION
  Report Type: 
  Country: None (occurrence: None)
  Receive Date: 20110419
  Receipt Date: 20101212
  Transmission Date: 20111010
  Serious: Yes (Hospitalization, Other)
  Sender: FDA-Public Use
  Company Number: US-BAYER-201022990NA

PATIENT
  Age: 19 Year
  Sex: Female
  Weight: 52 kg

DRUGS (3)
  1. MIDOL LIQUID GELS [Concomitant]
     Indication: DYSMENORRHOEA
  2. YASMIN [Suspect]
     Indication: ACNE
     Route: 048
     Dates: start: 20070401
  3. YASMIN [Suspect]
     Dosage: UNK
     Dates: start: 20080601

REACTIONS (9)
  - ABDOMINAL PAIN UPPER [None]
  - NAUSEA [None]
  - VOMITING [None]
  - TRANSAMINASES INCREASED [None]
  - GALLBLADDER INJURY [None]
  - CHOLELITHIASIS [None]
  - BLOOD BILIRUBIN INCREASED [None]
  - PROCEDURAL PAIN [None]
  - DIARRHOEA [None]
